FAERS Safety Report 10924734 (Version 2)
Quarter: 2015Q2

REPORT INFORMATION
  Report Type: Spontaneous
  Country: US (occurrence: US)
  Receive Date: 20150318
  Receipt Date: 20150524
  Transmission Date: 20150821
  Serious: No
  Sender: FDA-Public Use
  Company Number: US-JNJFOC-20130604543

PATIENT
  Sex: Male
  Weight: 72.58 kg

DRUGS (2)
  1. NEXIUM [Concomitant]
     Active Substance: ESOMEPRAZOLE MAGNESIUM
     Indication: BARRETT^S OESOPHAGUS
     Route: 065
  2. NIZORAL A-D [Suspect]
     Active Substance: KETOCONAZOLE
     Indication: SKIN DISORDER
     Route: 061

REACTIONS (1)
  - Intentional product misuse [Unknown]
